FAERS Safety Report 14177388 (Version 3)
Quarter: 2018Q1

REPORT INFORMATION
  Report Type: Spontaneous
  Country: US (occurrence: US)
  Receive Date: 20171110
  Receipt Date: 20180116
  Transmission Date: 20180508
  Serious: Yes (Hospitalization, Other)
  Sender: FDA-Public Use
  Company Number: US-GLAXOSMITHKLINE-US2017168735

PATIENT
  Age: 52 Year
  Sex: Female

DRUGS (14)
  1. ANORO ELLIPTA [Suspect]
     Active Substance: UMECLIDINIUM BROMIDE\VILANTEROL TRIFENATATE
     Indication: CHRONIC OBSTRUCTIVE PULMONARY DISEASE
     Dosage: 1 PUFF(S), QD
     Route: 055
     Dates: start: 201703
  2. ANORO ELLIPTA [Suspect]
     Active Substance: UMECLIDINIUM BROMIDE\VILANTEROL TRIFENATATE
     Dosage: UNK
  3. LORATADINE. [Concomitant]
     Active Substance: LORATADINE
  4. NAPROXEN. [Concomitant]
     Active Substance: NAPROXEN
  5. BUMETANIDE. [Suspect]
     Active Substance: BUMETANIDE
     Dosage: 0.5 MG, UNK
  6. SULFAMETHOXAZOLE [Concomitant]
     Active Substance: SULFAMETHOXAZOLE
  7. ANORO ELLIPTA [Suspect]
     Active Substance: UMECLIDINIUM BROMIDE\VILANTEROL TRIFENATATE
     Dosage: UNK
  8. BUMETANIDE. [Suspect]
     Active Substance: BUMETANIDE
     Indication: CARDIAC FAILURE CONGESTIVE
     Dosage: 1 MG, UNK
  9. ERYTHROMYCIN. [Concomitant]
     Active Substance: ERYTHROMYCIN
     Indication: ANTIBIOTIC PROPHYLAXIS
     Dosage: 0.5 DF, UNK
  10. ESOMEPRAZOLE [Concomitant]
     Active Substance: ESOMEPRAZOLE
  11. POTASSIUM CHLORIDE. [Concomitant]
     Active Substance: POTASSIUM CHLORIDE
     Dosage: 10 MEQ, UNK
  12. OXYGEN. [Concomitant]
     Active Substance: OXYGEN
  13. BUMETANIDE. [Concomitant]
     Active Substance: BUMETANIDE
  14. MONTELUKAST [Concomitant]
     Active Substance: MONTELUKAST SODIUM

REACTIONS (8)
  - Apparent death [Unknown]
  - Oxygen saturation decreased [Unknown]
  - Peripheral swelling [Unknown]
  - Disturbance in attention [Unknown]
  - Protein urine present [Recovering/Resolving]
  - Labelled drug-drug interaction medication error [Unknown]
  - Fluid retention [Unknown]
  - Micturition frequency decreased [Unknown]

NARRATIVE: CASE EVENT DATE: 201704
